FAERS Safety Report 7483472-8 (Version None)
Quarter: 2011Q2

REPORT INFORMATION
  Report Type: 
  Country: None (occurrence: None)
  Receive Date: 20110509
  Receipt Date: 20110429
  Transmission Date: 20111010
  Serious: No
  Sender: FDA-Public Use
  Company Number: 2011-00247

PATIENT
  Age: 90 Year
  Sex: Female
  Weight: 61.2356 kg

DRUGS (4)
  1. OMEPRAZOLE [Concomitant]
  2. ZICAM COLD REMEDY RAPIDMELTS W/VITAMIN C + ECHINACEA [Suspect]
     Dosage: 2 DOSES, 3 DAYS
     Dates: start: 20110414, end: 20110416
  3. TAMBOCOR [Concomitant]
  4. METOPROLOL TARTRATE [Concomitant]

REACTIONS (1)
  - AGEUSIA [None]
